FAERS Safety Report 8918907 (Version 2)
Quarter: 2013Q2

REPORT INFORMATION
  Report Type: Spontaneous
  Country: US (occurrence: CA)
  Receive Date: 20121121
  Receipt Date: 20130411
  Transmission Date: 20140414
  Serious: Yes (Hospitalization, Other)
  Sender: FDA-Public Use
  Company Number: CA-B.I. PHARMACEUTICALS,INC./RIDGEFIELD-2012-BP-26003BP

PATIENT
  Age: 68 Year
  Sex: Male

DRUGS (15)
  1. STATIN [Concomitant]
  2. FIBRIC ACID [Concomitant]
  3. EZETIMIBE [Concomitant]
  4. ANGIOTENSIN RECEPTOR BLOCKER [Concomitant]
  5. NITRATES [Concomitant]
  6. FLOMAX CAPSULES [Suspect]
  7. NORTRIPTYLINE HCL [Suspect]
  8. GABAPENTIN [Suspect]
  9. SAXAGLIPTIN [Suspect]
     Indication: TYPE 2 DIABETES MELLITUS
     Dates: start: 20101101
  10. PLACEBO [Suspect]
     Indication: TYPE 2 DIABETES MELLITUS
     Dates: start: 20101101
  11. GLYBURIDE [Suspect]
     Indication: TYPE 2 DIABETES MELLITUS
     Dosage: 40 MG
  12. LANTUS [Suspect]
     Indication: TYPE 2 DIABETES MELLITUS
     Dosage: 17 U
     Dates: start: 20120412
  13. ASPIRIN [Concomitant]
  14. BETA BLOCKER [Concomitant]
  15. ORAL ANTI COAGULANTS [Concomitant]

REACTIONS (9)
  - Toxicity to various agents [Not Recovered/Not Resolved]
  - Dizziness [Not Recovered/Not Resolved]
  - Dyspepsia [Unknown]
  - Vertigo [Unknown]
  - Weight decreased [Unknown]
  - Angina pectoris [Recovered/Resolved]
  - Nausea [Unknown]
  - Abdominal pain upper [Unknown]
  - Asthenia [Unknown]
